FAERS Safety Report 5590679-3 (Version None)
Quarter: 2008Q1

REPORT INFORMATION
  Report Type: 
  Country: None (occurrence: None)
  Receive Date: 20080114
  Receipt Date: 20080103
  Transmission Date: 20080703
  Serious: Yes (Disabling, Other)
  Sender: FDA-Public Use
  Company Number: GB-PFIZER INC-2007106170

PATIENT
  Sex: Male

DRUGS (6)
  1. LIPITOR [Suspect]
     Route: 048
  2. ALLOPURINOL [Concomitant]
     Dosage: DAILY DOSE:300MG-FREQ:DAILY
     Route: 048
  3. RAMIPRIL [Concomitant]
     Dosage: DAILY DOSE:5MG-FREQ:DAILY
     Route: 048
  4. LANSOPRAZOLE [Concomitant]
     Dosage: DAILY DOSE:30MG-FREQ:DAILY
     Route: 048
  5. CLOPIDOGREL [Concomitant]
     Dosage: DAILY DOSE:75MG-FREQ:DAILY
     Route: 048
  6. ATENOLOL [Concomitant]
     Dosage: DAILY DOSE:25MG-FREQ:DAILY
     Route: 048

REACTIONS (3)
  - FATIGUE [None]
  - SLEEP APNOEA SYNDROME [None]
  - SLEEP DISORDER [None]
